FAERS Safety Report 7945467-7 (Version None)
Quarter: 2011Q4

REPORT INFORMATION
  Report Type: 
  Country: None (occurrence: None)
  Receive Date: 20111129
  Receipt Date: 20111122
  Transmission Date: 20120403
  Serious: Yes (Other)
  Sender: FDA-Public Use
  Company Number: ES-UCBSA-046392

PATIENT
  Age: 56 Year
  Sex: Male

DRUGS (1)
  1. KEPPRA [Suspect]
     Indication: STATUS EPILEPTICUS
     Dosage: 100 MG/ML
     Route: 042

REACTIONS (1)
  - ILEUS PARALYTIC [None]
